FAERS Safety Report 13125873 (Version 1)
Quarter: 2017Q1

REPORT INFORMATION
  Report Type: Spontaneous
  Country: US (occurrence: US)
  Receive Date: 20170117
  Receipt Date: 20170117
  Transmission Date: 20170428
  Serious: Yes (Other)
  Sender: FDA-Public Use
  Company Number: None

PATIENT
  Age: 77 Year
  Sex: Female
  Weight: 54 kg

DRUGS (8)
  1. BROMELAINE/TUMERIC SUPPLEMENT [Concomitant]
  2. ATARAX [Suspect]
     Active Substance: HYDROXYZINE HYDROCHLORIDE
     Indication: INSOMNIA
     Dosage: ?          QUANTITY:1 TABLET(S);?
     Route: 048
  3. MULTI VITAMIN/MINERAL SUPPLEMENT FOR WOMEN OVER 40 [Concomitant]
  4. ATARAX [Suspect]
     Active Substance: HYDROXYZINE HYDROCHLORIDE
     Indication: ANXIETY
     Dosage: ?          QUANTITY:1 TABLET(S);?
     Route: 048
  5. LISINOPRIL. [Concomitant]
     Active Substance: LISINOPRIL
  6. ARMOUR THYROID [Concomitant]
     Active Substance: THYROID, PORCINE
  7. RESTORYL [Concomitant]
  8. BETA BLOCKERS [Concomitant]
     Active Substance: UNSPECIFIED INGREDIENT

REACTIONS (6)
  - Pruritus [None]
  - Middle insomnia [None]
  - Heart rate increased [None]
  - Urticaria [None]
  - Depressed mood [None]
  - Chest discomfort [None]

NARRATIVE: CASE EVENT DATE: 20170104
